FAERS Safety Report 6199590-0 (Version None)
Quarter: 2009Q2

REPORT INFORMATION
  Report Type: 
  Country: None (occurrence: None)
  Receive Date: 20090522
  Receipt Date: 20090513
  Transmission Date: 20091009
  Serious: Yes (Other)
  Sender: FDA-Public Use
  Company Number: B0575150A

PATIENT
  Sex: Female

DRUGS (10)
  1. AMOXICILLIN TRIHYDRATE [Suspect]
     Indication: INFECTION PROPHYLAXIS
     Route: 048
     Dates: start: 20090201, end: 20090424
  2. SOLIRIS [Suspect]
     Indication: HAEMOLYTIC URAEMIC SYNDROME
     Route: 042
     Dates: start: 20090213
  3. NEXIUM [Concomitant]
     Dates: start: 20090201, end: 20090424
  4. CALCIMAGON [Concomitant]
     Dates: start: 20090201
  5. NORVASC [Concomitant]
     Dates: start: 20090201
  6. TORSEMIDE [Concomitant]
     Dates: start: 20090201, end: 20090424
  7. METOPROLOL SUCCINATE [Concomitant]
     Dates: start: 20090201
  8. CALCIUM CARBONATE [Concomitant]
     Dates: start: 20090201
  9. POTASSIUM CHLORIDE [Concomitant]
     Dates: start: 20090201
  10. ACIDUM FOLICUM [Concomitant]
     Dates: start: 20090201

REACTIONS (2)
  - NEUTROPENIA [None]
  - RESPIRATORY TRACT INFECTION VIRAL [None]
